FAERS Safety Report 5429647-0 (Version None)
Quarter: 2007Q3

REPORT INFORMATION
  Report Type: 
  Country: None (occurrence: None)
  Receive Date: 20070829
  Receipt Date: 20070824
  Transmission Date: 20080115
  Serious: Yes (Hospitalization)
  Sender: FDA-Public Use
  Company Number: JP-SHR-JP-2007-032150

PATIENT
  Age: 76 Year
  Sex: Male

DRUGS (7)
  1. SOTALOL HCL [Suspect]
     Indication: VENTRICULAR TACHYCARDIA
     Dosage: 80 MG, UNK
     Route: 048
     Dates: start: 20060518, end: 20070207
  2. TORSEMIDE [Concomitant]
     Dosage: 4 MG, UNK
     Route: 048
     Dates: start: 20060518, end: 20070530
  3. OLMETEC [Concomitant]
     Dosage: 40 MG, UNK
     Route: 048
     Dates: start: 20060518, end: 20070530
  4. WARFARIN [Concomitant]
     Dosage: 4 MG, UNK
     Route: 048
     Dates: start: 20060518, end: 20070530
  5. CALBLOCK [Concomitant]
     Dosage: 16 MG, UNK
     Route: 048
     Dates: start: 20060518, end: 20070530
  6. ALLOPURINOL [Concomitant]
     Dosage: 100 MG, UNK
     Route: 048
     Dates: start: 20060518, end: 20070530
  7. SUCRALFATE [Concomitant]
     Dosage: 3 G, UNK
     Route: 048
     Dates: start: 20060518, end: 20070530

REACTIONS (2)
  - AORTIC VALVE INCOMPETENCE [None]
  - CARDIAC FAILURE [None]
